FAERS Safety Report 6454716-6 (Version None)
Quarter: 2009Q4

REPORT INFORMATION
  Report Type: 
  Country: None (occurrence: None)
  Receive Date: 20091118
  Receipt Date: 20091103
  Transmission Date: 20100525
  Serious: Yes (Death, Hospitalization)
  Sender: FDA-Public Use
  Company Number: 2009003383

PATIENT
  Age: 59 Year
  Sex: Male

DRUGS (6)
  1. ERLOTINIB HYDROCHLORIDE [Suspect]
     Indication: NON-SMALL CELL LUNG CANCER
     Dosage: (QD), ORAL
     Route: 048
     Dates: start: 20090624, end: 20091020
  2. MORPHINE SULFATE INJ [Concomitant]
  3. DEXAMETHASONE TAB [Concomitant]
  4. ENOXAPARIN SODIUM [Concomitant]
  5. RANITIDINE [Concomitant]
  6. ENSURE (ENSURE) [Concomitant]

REACTIONS (4)
  - CONFUSIONAL STATE [None]
  - LUNG CANCER METASTATIC [None]
  - MALIGNANT NEOPLASM PROGRESSION [None]
  - URINARY TRACT INFECTION [None]
